FAERS Safety Report 6615400-9 (Version None)
Quarter: 2010Q1

REPORT INFORMATION
  Report Type: 
  Country: None (occurrence: None)
  Receive Date: 20100305
  Receipt Date: 20091028
  Transmission Date: 20100710
  Serious: No
  Sender: FDA-Public Use
  Company Number: A0814268A

PATIENT
  Sex: Male

DRUGS (1)
  1. REQUIP [Suspect]
     Indication: PARKINSONISM
     Dosage: 8MG UNKNOWN
     Route: 048

REACTIONS (1)
  - TARDIVE DYSKINESIA [None]
